FAERS Safety Report 10651559 (Version 1)
Quarter: 2014Q4

REPORT INFORMATION
  Report Type: Spontaneous
  Country: US (occurrence: None)
  Receive Date: 20141212
  Receipt Date: 20141212
  Transmission Date: 20150529
  Serious: No
  Sender: FDA-Public Use
  Company Number: None

PATIENT
  Sex: Male

DRUGS (14)
  1. PREDNISONE. [Concomitant]
     Active Substance: PREDNISONE
  2. AZOPT [Concomitant]
     Active Substance: BRINZOLAMIDE
  3. BISACODYL. [Concomitant]
     Active Substance: BISACODYL
  4. ONDANSETRON [Concomitant]
     Active Substance: ONDANSETRON
  5. XTANDI [Concomitant]
     Active Substance: ENZALUTAMIDE
  6. HYDROCODONE/ACETAMINOP [Concomitant]
  7. METOPROLOL ER SUCCINATE [Concomitant]
     Active Substance: METOPROLOL SUCCINATE
  8. AMLODIPINE BESYLATE. [Concomitant]
     Active Substance: AMLODIPINE BESYLATE
  9. TRAVATAN [Concomitant]
     Active Substance: TRAVOPROST
  10. BENAZEPRIL [Concomitant]
     Active Substance: BENAZEPRIL\BENAZEPRIL HYDROCHLORIDE
  11. XTANDI [Suspect]
     Active Substance: ENZALUTAMIDE
     Indication: NEOPLASM MALIGNANT
     Route: 048
     Dates: start: 20140228
  12. TAMSULOSIN [Concomitant]
     Active Substance: TAMSULOSIN
  13. ACETAMINOPHEN/COD #3 [Concomitant]
  14. ZYTIGA [Concomitant]
     Active Substance: ABIRATERONE ACETATE

REACTIONS (1)
  - Peripheral swelling [None]
